FAERS Safety Report 24404672 (Version 1)
Quarter: 2024Q4

REPORT INFORMATION
  Report Type: Spontaneous
  Country: CN (occurrence: CN)
  Receive Date: 20241007
  Receipt Date: 20241007
  Transmission Date: 20250115
  Serious: No
  Sender: ROCHE
  Company Number: CN-ROCHE-3520739

PATIENT
  Age: 58 Year
  Sex: Male
  Weight: 70.0 kg

DRUGS (6)
  1. GAZYVA [Suspect]
     Active Substance: OBINUTUZUMAB
     Indication: Follicular lymphoma stage IV
     Route: 041
     Dates: start: 20230905, end: 20230911
  2. MABTHERA [Suspect]
     Active Substance: RITUXIMAB
     Indication: Product used for unknown indication
     Dosage: ON AN UNSPECIFIED DATE, THE PATIENT RECEIVED RITUXIMAB TREATMENT
     Route: 041
     Dates: start: 20230904
  3. CYCLOPHOSPHAMIDE [Concomitant]
     Active Substance: CYCLOPHOSPHAMIDE
     Indication: Follicular lymphoma stage IV
     Dosage: THE THIRD PHASE OF G-CHOP REGIMEN WAS PERFORMED
     Dates: start: 20230904
  4. DOXORUBICIN [Concomitant]
     Active Substance: DOXORUBICIN
     Indication: Follicular lymphoma stage IV
     Dosage: THE THIRD PHASE OF G-CHOP REGIMEN WAS PERFORMED
     Dates: start: 20230904
  5. VINCRISTINE [Concomitant]
     Active Substance: VINCRISTINE
     Indication: Follicular lymphoma stage IV
     Dosage: THE THIRD PHASE OF G-CHOP REGIMEN WAS PERFORMED
     Dates: start: 20230904
  6. PREDNISONE [Concomitant]
     Active Substance: PREDNISONE
     Indication: Follicular lymphoma stage IV
     Dosage: THE THIRD PHASE OF G-CHOP REGIMEN WAS PERFORMED
     Dates: start: 20230904

REACTIONS (1)
  - Discomfort [Recovered/Resolved]

NARRATIVE: CASE EVENT DATE: 20230905
